FAERS Safety Report 19493182 (Version 1)
Quarter: 2021Q3

REPORT INFORMATION
  Report Type: Spontaneous
  Country: SE (occurrence: SE)
  Receive Date: 20210705
  Receipt Date: 20210705
  Transmission Date: 20211014
  Serious: Yes (Other)
  Sender: FDA-Public Use
  Company Number: SE-GLAXOSMITHKLINE-SECH2021031962

PATIENT
  Sex: Female

DRUGS (1)
  1. VOLTAREN 23.2 MG/G [Suspect]
     Active Substance: DICLOFENAC DIETHYLAMINE
     Indication: PAIN
     Dosage: UNK

REACTIONS (3)
  - Rash [Unknown]
  - Loss of consciousness [Recovered/Resolved]
  - Hypersensitivity [Unknown]
